FAERS Safety Report 7019308-9 (Version None)
Quarter: 2010Q3

REPORT INFORMATION
  Report Type: 
  Country: None (occurrence: None)
  Receive Date: 20100928
  Receipt Date: 20100927
  Transmission Date: 20110219
  Serious: Yes (Hospitalization)
  Sender: FDA-Public Use
  Company Number: IT-MERCK-1009ITA00028

PATIENT
  Age: 54 Year
  Sex: Female

DRUGS (1)
  1. MODURETIC 5-50 [Suspect]
     Indication: HYPERTENSION
     Route: 048
     Dates: start: 20100908, end: 20100908

REACTIONS (5)
  - ABDOMINAL PAIN UPPER [None]
  - DYSPNOEA [None]
  - PARAESTHESIA ORAL [None]
  - SENSE OF OPPRESSION [None]
  - TACHYCARDIA [None]
